FAERS Safety Report 8575782-8 (Version None)
Quarter: 2012Q3

REPORT INFORMATION
  Report Type: 
  Country: None (occurrence: None)
  Receive Date: 20120807
  Receipt Date: 20120731
  Transmission Date: 20120928
  Serious: Yes (Other)
  Sender: FDA-Public Use
  Company Number: BR-US-EMD SERONO, INC.-7122341

PATIENT
  Sex: Male

DRUGS (5)
  1. MOTILIUM [Concomitant]
     Indication: PRODUCT USED FOR UNKNOWN INDICATION
  2. CALCIUM [Concomitant]
     Indication: PRODUCT USED FOR UNKNOWN INDICATION
  3. REBIF [Suspect]
     Indication: RELAPSING-REMITTING MULTIPLE SCLEROSIS
     Dates: start: 20111222
  4. DORFLEX [Concomitant]
     Indication: PRODUCT USED FOR UNKNOWN INDICATION
  5. ALPRAZOLAM [Concomitant]
     Indication: PRODUCT USED FOR UNKNOWN INDICATION

REACTIONS (13)
  - SUICIDAL IDEATION [None]
  - DYSPNOEA [None]
  - ORAL DISCOMFORT [None]
  - MULTIPLE SCLEROSIS RELAPSE [None]
  - BACK PAIN [None]
  - PAIN [None]
  - HEADACHE [None]
  - NERVOUSNESS [None]
  - ERYTHEMA [None]
  - HAEMORRHAGE [None]
  - VISUAL IMPAIRMENT [None]
  - DRUG INEFFECTIVE [None]
  - PRURITUS GENERALISED [None]
